FAERS Safety Report 19271048 (Version 1)
Quarter: 2021Q2

REPORT INFORMATION
  Report Type: Spontaneous
  Country: DE (occurrence: DE)
  Receive Date: 20210518
  Receipt Date: 20210518
  Transmission Date: 20210717
  Serious: Yes (Other)
  Sender: FDA-Public Use
  Company Number: NVSC2021DE106893

PATIENT
  Sex: Female

DRUGS (1)
  1. DOXYHEXAL 100 [Suspect]
     Active Substance: DOXYCYCLINE
     Indication: PRODUCT USED FOR UNKNOWN INDICATION
     Route: 065

REACTIONS (7)
  - Nasal dryness [Unknown]
  - Dry mouth [Unknown]
  - Abdominal pain [Unknown]
  - Illness [Unknown]
  - Fatigue [Unknown]
  - Dyspnoea at rest [Unknown]
  - Headache [Unknown]
